FAERS Safety Report 10860814 (Version 5)
Quarter: 2015Q3

REPORT INFORMATION
  Report Type: Spontaneous
  Country: US (occurrence: US)
  Receive Date: 20150224
  Receipt Date: 20150709
  Transmission Date: 20151125
  Serious: Yes (Other)
  Sender: FDA-Public Use
  Company Number: US-GLAXOSMITHKLINE-US2015GSK006884

PATIENT
  Age: 57 Year
  Sex: Male

DRUGS (9)
  1. VOTRIENT [Suspect]
     Active Substance: PAZOPANIB HYDROCHLORIDE
     Indication: RENAL CANCER
     Dosage: 160 MG, QD
     Route: 048
     Dates: start: 20141203
  2. LEVOTHYROXINE. [Concomitant]
     Active Substance: LEVOTHYROXINE
  3. VOTRIENT [Suspect]
     Active Substance: PAZOPANIB HYDROCHLORIDE
     Indication: RENAL CELL CARCINOMA
     Dosage: 600 MG, QD
     Dates: start: 20141202
  4. VOTRIENT [Suspect]
     Active Substance: PAZOPANIB HYDROCHLORIDE
     Dosage: 600 MG, QD
  5. VOTRIENT [Suspect]
     Active Substance: PAZOPANIB HYDROCHLORIDE
     Dosage: 800 MG, QD
     Route: 048
  6. OXYCONTIN [Concomitant]
     Active Substance: OXYCODONE HYDROCHLORIDE
  7. CALCIUM [Concomitant]
     Active Substance: CALCIUM
  8. VOLTAREN [Concomitant]
     Active Substance: DICLOFENAC SODIUM
  9. OXYCODONE [Concomitant]
     Active Substance: OXYCODONE

REACTIONS (12)
  - Oedema peripheral [Unknown]
  - Musculoskeletal pain [Unknown]
  - Thyroid disorder [Unknown]
  - Thrombosis [Unknown]
  - Peripheral swelling [Unknown]
  - Muscle spasms [Unknown]
  - Deep vein thrombosis [Unknown]
  - Hydronephrosis [Unknown]
  - Lymphoedema [Unknown]
  - Hypoaesthesia [Unknown]
  - Dyspepsia [Not Recovered/Not Resolved]
  - Fatigue [Unknown]

NARRATIVE: CASE EVENT DATE: 20141203
